FAERS Safety Report 18877519 (Version 1)
Quarter: 2021Q1

REPORT INFORMATION
  Report Type: Spontaneous
  Country: US (occurrence: US)
  Receive Date: 20210210
  Receipt Date: 20210210
  Transmission Date: 20210420
  Serious: Yes (Death)
  Sender: FDA-Public Use
  Company Number: None

PATIENT
  Age: 79 Year
  Sex: Male

DRUGS (1)
  1. TEMOZOLOMIDE CAP 140MG [Suspect]
     Active Substance: TEMOZOLOMIDE
     Dosage: OTHER
     Route: 048
     Dates: start: 202011, end: 202102

REACTIONS (1)
  - Death [None]

NARRATIVE: CASE EVENT DATE: 20210204
